FAERS Safety Report 5230423-2 (Version None)
Quarter: 2007Q1

REPORT INFORMATION
  Report Type: 
  Country: None (occurrence: None)
  Receive Date: 20070206
  Receipt Date: 20070130
  Transmission Date: 20070707
  Serious: Yes (Death)
  Sender: FDA-Public Use
  Company Number: FR-SOLVAY-00207000300

PATIENT
  Age: 60 Year
  Sex: Male
  Weight: 54 kg

DRUGS (8)
  1. PERINDOPRIL ERBUMINE [Suspect]
     Indication: CARDIAC FAILURE CHRONIC
     Dosage: DAILY DOSE: 2 MILLIGRAM(S)
     Route: 048
     Dates: start: 20060712, end: 20061127
  2. PERINDOPRIL ERBUMINE [Suspect]
     Dosage: DAILY DOSE: 4 MILLIGRAM(S)
     Route: 048
     Dates: start: 20061128, end: 20070108
  3. ASPIRIN [Concomitant]
     Indication: ILL-DEFINED DISORDER
     Dosage: DAILY DOSE:  UNKNOWN
     Route: 065
     Dates: start: 20060811, end: 20070108
  4. KREDEX [Suspect]
     Indication: CARDIAC FAILURE CHRONIC
     Dosage: DAILY DOSE: 6.25 MILLIGRAM(S)
     Route: 048
     Dates: start: 20060712, end: 20061201
  5. KREDEX [Suspect]
     Dosage: DAILY DOSE: 12.5 MILLIGRAM(S)
     Route: 048
     Dates: start: 20061223, end: 20070108
  6. FUROSEMIDE [Concomitant]
     Indication: ILL-DEFINED DISORDER
     Dosage: DAILY DOSE:  UNKNOWN
     Route: 065
     Dates: start: 20060712, end: 20070108
  7. NEXIUM [Concomitant]
     Indication: ILL-DEFINED DISORDER
     Dosage: DAILY DOSE:  UNKNOWN
     Route: 048
     Dates: start: 20060712, end: 20070108
  8. SIMVASTATIN [Concomitant]
     Indication: ILL-DEFINED DISORDER
     Dosage: DAILY DOSE:  UNKNOWN
     Route: 048
     Dates: start: 20060811, end: 20070108

REACTIONS (9)
  - BRAIN OEDEMA [None]
  - CEREBRAL HAEMORRHAGE [None]
  - COMA [None]
  - FALL [None]
  - GENERAL PHYSICAL HEALTH DETERIORATION [None]
  - LOSS OF CONSCIOUSNESS [None]
  - MALAISE [None]
  - SKULL FRACTURED BASE [None]
  - SUBDURAL HAEMATOMA [None]
